FAERS Safety Report 9376896 (Version 3)
Quarter: 2013Q3

REPORT INFORMATION
  Report Type: Report from Study
  Country: CA (occurrence: CA)
  Receive Date: 20130701
  Receipt Date: 20130911
  Transmission Date: 20140515
  Serious: Yes (Hospitalization)
  Sender: FDA-Public Use
  Company Number: CA-ABBOTT-13P-028-1111831-00

PATIENT
  Sex: Female

DRUGS (2)
  1. HUMIRA [Suspect]
     Indication: RHEUMATOID ARTHRITIS
     Route: 058
     Dates: start: 20050912
  2. HUMIRA [Suspect]
     Route: 058
     Dates: start: 20130828

REACTIONS (2)
  - Nasopharyngitis [Not Recovered/Not Resolved]
  - Asthma [Unknown]
